FAERS Safety Report 23512022 (Version 2)
Quarter: 2024Q1

REPORT INFORMATION
  Report Type: Other
  Country: DK (occurrence: DK)
  Receive Date: 20240212
  Receipt Date: 20240307
  Transmission Date: 20240410
  Serious: Yes (Hospitalization)
  Sender: FDA-Public Use
  Company Number: DK-ALVOGEN-2024093007

PATIENT
  Age: 39 Year
  Sex: Male

DRUGS (1)
  1. METHYLPHENIDATE [Suspect]
     Active Substance: METHYLPHENIDATE
     Indication: Product used for unknown indication

REACTIONS (5)
  - Splenic infarction [Unknown]
  - Artery dissection [Unknown]
  - Arterial thrombosis [Unknown]
  - Hypertension [Unknown]
  - Abdominal pain [Unknown]
